FAERS Safety Report 7522318-6 (Version None)
Quarter: 2011Q2

REPORT INFORMATION
  Report Type: 
  Country: None (occurrence: None)
  Receive Date: 20110603
  Receipt Date: 20110520
  Transmission Date: 20111010
  Serious: Yes (Hospitalization, Other)
  Sender: FDA-Public Use
  Company Number: PHHY2009JP59161

PATIENT
  Sex: Female

DRUGS (4)
  1. GLEEVEC [Suspect]
     Dosage: 400 MG/DAY
     Route: 048
     Dates: start: 20070503, end: 20070613
  2. GLEEVEC [Suspect]
     Indication: GASTROINTESTINAL STROMAL TUMOUR
     Dosage: 400 MG, PER DAY
     Route: 048
     Dates: start: 20031206, end: 20050509
  3. GLEEVEC [Suspect]
     Dosage: 400 MG/DAY
     Route: 048
     Dates: start: 20050525, end: 20070419
  4. GLEEVEC [Suspect]
     Dosage: 300 MG/DAY
     Route: 048
     Dates: start: 20070614, end: 20071226

REACTIONS (7)
  - FACE OEDEMA [None]
  - OEDEMA PERIPHERAL [None]
  - PYREXIA [None]
  - PAIN [None]
  - PYELONEPHRITIS [None]
  - CALCULUS URETERIC [None]
  - RENAL FAILURE ACUTE [None]
